FAERS Safety Report 8399819 (Version 3)
Quarter: 2012Q4

REPORT INFORMATION
  Report Type: Spontaneous
  Country: JP (occurrence: None)
  Receive Date: 20120131
  Receipt Date: 20120529
  Transmission Date: 20130627
  Serious: Yes (Other)
  Sender: FDA-Public Use
  Company Number: JP-2012-10309

PATIENT
  Age: 63 Year
  Sex: Female
  Weight: 48 kg

DRUGS (8)
  1. SAMSCA [Suspect]
     Indication: CARDIAC FAILURE CONGESTIVE
     Dosage: 15 MG MILLIGRAM(S), QD, ORAL
     Route: 048
     Dates: start: 20111031, end: 20111102
  2. ASPIRIN [Concomitant]
  3. PLAVIX [Concomitant]
  4. TORSEMIDE [Concomitant]
  5. LASIX [Concomitant]
  6. CARVEDILOL [Suspect]
  7. DOBUTAMINE HYDROCHLORIDE [Concomitant]
  8. KN NO.3 (MAINTENANCE MEDIUM) [Concomitant]

REACTIONS (5)
  - ALTERED STATE OF CONSCIOUSNESS [None]
  - HYPERNATRAEMIA [None]
  - DISORIENTATION [None]
  - HALLUCINATION [None]
  - DELIRIUM [None]
